FAERS Safety Report 25428787 (Version 1)
Quarter: 2025Q2

REPORT INFORMATION
  Report Type: Spontaneous
  Country: US (occurrence: None)
  Receive Date: 20250611
  Receipt Date: 20250611
  Transmission Date: 20250716
  Serious: Yes (unspecified)
  Sender: FDA-CTU
  Company Number: None

PATIENT
  Age: 67 Year
  Sex: Female
  Weight: 94.4 kg

DRUGS (2)
  1. LUSPATERCEPT [Suspect]
     Active Substance: LUSPATERCEPT
     Indication: Myelodysplastic syndrome with ringed sideroblasts
     Route: 058
     Dates: start: 20231223
  2. BACTRIM [Concomitant]
     Active Substance: SULFAMETHOXAZOLE\TRIMETHOPRIM
     Dates: start: 20250411, end: 20250416

REACTIONS (3)
  - Hypersensitivity [None]
  - Injection site reaction [None]
  - Paraesthesia oral [None]

NARRATIVE: CASE EVENT DATE: 20250423
